FAERS Safety Report 18126076 (Version 2)
Quarter: 2020Q3

REPORT INFORMATION
  Report Type: Report from Study
  Country: None (occurrence: US)
  Receive Date: 20200808
  Receipt Date: 20200824
  Transmission Date: 20201103
  Serious: Yes (Other)
  Sender: FDA-Public Use
  Company Number: US-ABBVIE-20K-163-3509184-00

PATIENT
  Sex: Female

DRUGS (1)
  1. RINVOQ [Suspect]
     Active Substance: UPADACITINIB
     Indication: RHEUMATOID ARTHRITIS
     Route: 048
     Dates: start: 201912, end: 202008

REACTIONS (7)
  - Rash [Unknown]
  - Urticaria [Unknown]
  - Rash pruritic [Not Recovered/Not Resolved]
  - Drug hypersensitivity [Unknown]
  - Systemic lupus erythematosus [Unknown]
  - Skin weeping [Not Recovered/Not Resolved]
  - Rash papular [Unknown]
